FAERS Safety Report 16540786 (Version 1)
Quarter: 2019Q3

REPORT INFORMATION
  Report Type: Spontaneous
  Country: US (occurrence: US)
  Receive Date: 20190707
  Receipt Date: 20190707
  Transmission Date: 20191004
  Serious: Yes (Life-Threatening, Disabling, Other)
  Sender: FDA-Public Use
  Company Number: None

PATIENT
  Age: 32 Year
  Sex: Female
  Weight: 48.15 kg

DRUGS (7)
  1. L TYROSINE [Concomitant]
  2. EMGALITY [Suspect]
     Active Substance: GALCANEZUMAB-GNLM
     Indication: MIGRAINE
     Dates: start: 20190701
  3. ZINC. [Concomitant]
     Active Substance: ZINC
  4. KLONOPIN [Concomitant]
     Active Substance: CLONAZEPAM
  5. SAME E [Concomitant]
  6. WELLBUTRIN XL [Concomitant]
     Active Substance: BUPROPION HYDROCHLORIDE
  7. ADDERALL XR [Concomitant]
     Active Substance: AMPHETAMINE ASPARTATE\AMPHETAMINE SULFATE\DEXTROAMPHETAMINE SACCHARATE\DEXTROAMPHETAMINE SULFATE

REACTIONS (7)
  - Insomnia [None]
  - Dizziness [None]
  - Oropharyngeal pain [None]
  - Depressed mood [None]
  - Nausea [None]
  - Malaise [None]
  - Feeling hot [None]

NARRATIVE: CASE EVENT DATE: 20190701
